FAERS Safety Report 19451513 (Version 1)
Quarter: 2021Q2

REPORT INFORMATION
  Report Type: Report from Study
  Country: None (occurrence: US)
  Receive Date: 20210623
  Receipt Date: 20210623
  Transmission Date: 20210717
  Serious: Yes (Other)
  Sender: FDA-Public Use
  Company Number: US-ABBVIE-21K-163-3957961-00

PATIENT
  Age: 47 Year
  Sex: Male

DRUGS (2)
  1. CREON [Suspect]
     Active Substance: PANCRELIPASE AMYLASE\PANCRELIPASE LIPASE\PANCRELIPASE PROTEASE
     Indication: PANCREATECTOMY
     Dosage: ONE CAPSULE WITH EACH SNACK AND TWO CAPSULES WITH EACH MEAL.
     Route: 048
     Dates: start: 2017
  2. CREON [Suspect]
     Active Substance: PANCRELIPASE AMYLASE\PANCRELIPASE LIPASE\PANCRELIPASE PROTEASE
     Dosage: ONE CAPSULE WITH EACH SNACK AND TWO CAPSULES WITH EACH MEAL.
     Route: 048
     Dates: start: 202010

REACTIONS (4)
  - Intervertebral disc protrusion [Not Recovered/Not Resolved]
  - Abnormal faeces [Not Recovered/Not Resolved]
  - Myocardial infarction [Recovered/Resolved]
  - Cartilage injury [Recovered/Resolved]

NARRATIVE: CASE EVENT DATE: 2018
